FAERS Safety Report 9250256 (Version 2)
Quarter: 2022Q3

REPORT INFORMATION
  Report Type: Other
  Country: CA (occurrence: None)
  Receive Date: 20130424
  Receipt Date: 20220801
  Transmission Date: 20221026
  Serious: Yes (Death)
  Sender: FDA-Public Use
  Company Number: CA-ROCHE-1217722

PATIENT
  Sex: Female
  Weight: 61.7 kg

DRUGS (2)
  1. RITUXAN [Suspect]
     Active Substance: RITUXIMAB
     Indication: Acquired haemophilia
     Dosage: WEEKLY
     Route: 042
     Dates: start: 20121219, end: 20130110
  2. RITUXAN [Suspect]
     Active Substance: RITUXIMAB
     Indication: Off label use

REACTIONS (2)
  - Death [Fatal]
  - Off label use [Unknown]
